FAERS Safety Report 8002853-7 (Version None)
Quarter: 2011Q4

REPORT INFORMATION
  Report Type: 
  Country: None (occurrence: None)
  Receive Date: 20111222
  Receipt Date: 20101213
  Transmission Date: 20120403
  Serious: No
  Sender: FDA-Public Use
  Company Number: US-GLAXOSMITHKLINE-A0899542A

PATIENT
  Age: 62 Year
  Sex: Male

DRUGS (11)
  1. AVODART [Suspect]
     Indication: BENIGN PROSTATIC HYPERPLASIA
     Dosage: .5MG PER DAY
     Route: 048
     Dates: start: 20101101, end: 20101212
  2. DIOVAN [Concomitant]
  3. WELCHOL [Concomitant]
  4. PLAVIX [Concomitant]
  5. VITAMIN B COMPLEX CAP [Concomitant]
  6. ZETIA [Concomitant]
  7. MAGNESIUM [Concomitant]
  8. VITAMIN E [Concomitant]
  9. VITAMIN K TAB [Concomitant]
  10. SAW PALMETTO [Concomitant]
  11. VITAMIN D [Concomitant]

REACTIONS (7)
  - MUSCLE SPASMS [None]
  - FATIGUE [None]
  - INSOMNIA [None]
  - DRUG INEFFECTIVE [None]
  - FLATULENCE [None]
  - PALPITATIONS [None]
  - CHEST PAIN [None]
